FAERS Safety Report 16003064 (Version 1)
Quarter: 2019Q1

REPORT INFORMATION
  Report Type: Spontaneous
  Country: US (occurrence: US)
  Receive Date: 20190225
  Receipt Date: 20190225
  Transmission Date: 20190418
  Serious: No
  Sender: FDA-Public Use
  Company Number: US-SA-2019SA051529

PATIENT
  Age: 5 Year
  Sex: Female

DRUGS (1)
  1. CLOLAR [Suspect]
     Active Substance: CLOFARABINE
     Indication: LANGERHANS^ CELL HISTIOCYTOSIS
     Dosage: 25MG/M2
     Route: 042
     Dates: start: 20190211, end: 20190215

REACTIONS (5)
  - Pain of skin [Recovered/Resolved]
  - Urticaria [Not Recovered/Not Resolved]
  - Arthralgia [Recovered/Resolved]
  - Joint swelling [Recovered/Resolved]
  - Skin irritation [Recovered/Resolved]
